FAERS Safety Report 19899706 (Version 1)
Quarter: 2021Q3

REPORT INFORMATION
  Report Type: Spontaneous
  Country: IT (occurrence: IT)
  Receive Date: 20210930
  Receipt Date: 20210930
  Transmission Date: 20211014
  Serious: Yes (Other)
  Sender: FDA-Public Use
  Company Number: NVSC2021IT220186

PATIENT
  Age: 47 Year
  Sex: Female
  Weight: 70 kg

DRUGS (1)
  1. ADALIMUMAB [Suspect]
     Active Substance: ADALIMUMAB
     Indication: PSORIASIS
     Dosage: 80 UG, PRN (AS NECESSARY)
     Route: 058
     Dates: start: 20190501, end: 20210922

REACTIONS (2)
  - Skin exfoliation [Unknown]
  - Injury [Unknown]

NARRATIVE: CASE EVENT DATE: 20210921
